FAERS Safety Report 21821039 (Version 1)
Quarter: 2023Q1

REPORT INFORMATION
  Report Type: Report from Study
  Country: US (occurrence: US)
  Receive Date: 20230105
  Receipt Date: 20230105
  Transmission Date: 20230418
  Serious: Yes (Other)
  Sender: FDA-Public Use
  Company Number: US-002147023-NVSC2022US301953

PATIENT
  Sex: Male

DRUGS (1)
  1. ENTRESTO [Suspect]
     Active Substance: SACUBITRIL\VALSARTAN
     Indication: Product used for unknown indication
     Dosage: 49/51 MG, BID
     Route: 065

REACTIONS (6)
  - Pneumonia [Unknown]
  - Myocardial infarction [Unknown]
  - Chest pain [Unknown]
  - Cardiac failure [Unknown]
  - Atrioventricular block [Unknown]
  - Throat clearing [Unknown]
